FAERS Safety Report 19120620 (Version 1)
Quarter: 2021Q2

REPORT INFORMATION
  Report Type: Spontaneous
  Country: US (occurrence: US)
  Receive Date: 20210410
  Receipt Date: 20210410
  Transmission Date: 20210717
  Serious: Yes (Other)
  Sender: FDA-Public Use
  Company Number: None

PATIENT
  Age: 26 Year
  Weight: 56.7 kg

DRUGS (4)
  1. IMIQUIMOD 5% CREAM PACKET [Suspect]
     Active Substance: IMIQUIMOD
     Indication: VAGINAL DYSPLASIA
     Dosage: ?          QUANTITY:0.25 PACKET;OTHER FREQUENCY:4 TIMES FOR 6 WEEK;?
     Route: 067
  2. RETINOL [Concomitant]
     Active Substance: RETINOL
  3. VITAMIN C [Concomitant]
     Active Substance: ASCORBIC ACID
  4. LIDOCAINE JELLY [Concomitant]
     Active Substance: LIDOCAINE

REACTIONS (12)
  - Ovarian cyst [None]
  - Pelvic infection [None]
  - Pelvic pain [None]
  - Pelvic inflammatory disease [None]
  - Dehydration [None]
  - Influenza like illness [None]
  - Vulvovaginal pruritus [None]
  - Dyspnoea [None]
  - Pain [None]
  - Adnexa uteri pain [None]
  - Vulvovaginal swelling [None]
  - Pollakiuria [None]

NARRATIVE: CASE EVENT DATE: 20210303
